FAERS Safety Report 8606960-7 (Version None)
Quarter: 2012Q3

REPORT INFORMATION
  Report Type: 
  Country: None (occurrence: None)
  Receive Date: 20120820
  Receipt Date: 20120815
  Transmission Date: 20120928
  Serious: No
  Sender: FDA-Public Use
  Company Number: US-PFIZER INC-2012200038

PATIENT
  Age: 52 Year
  Sex: Female
  Weight: 58.957 kg

DRUGS (5)
  1. PREMPRO [Suspect]
     Indication: MENOPAUSE
     Dosage: 0.45/1.5 MG, DAILY
     Dates: start: 20110701
  2. PENTASA [Concomitant]
     Indication: CROHN'S DISEASE
     Dosage: 1 G, 3X/DAY
     Dates: start: 20050101
  3. FOLIC ACID [Concomitant]
     Indication: CROHN'S DISEASE
     Dosage: 1 MG, DAILY
     Dates: start: 20050101
  4. NEXIUM [Concomitant]
     Indication: CROHN'S DISEASE
     Dosage: 40 MG, DAILY
     Dates: start: 20050101
  5. VITAMIN B-12 [Concomitant]
     Indication: CROHN'S DISEASE
     Dosage: UNK, MONTHLY
     Dates: start: 20050101

REACTIONS (1)
  - ALOPECIA [None]
